FAERS Safety Report 8882223 (Version 1)
Quarter: 2012Q4

REPORT INFORMATION
  Report Type: 
  Country: HR (occurrence: HR)
  Receive Date: 20121105
  Receipt Date: 20121105
  Transmission Date: 20130627
  Serious: Yes (Death, Hospitalization, Other)
  Sender: FDA-Public Use
  Company Number: HR-MILLENNIUM PHARMACEUTICALS, INC.-2012-07594

PATIENT

DRUGS (6)
  1. VELCADE [Suspect]
     Indication: MULTIPLE MYELOMA
     Dosage: 1.3 mg/m2, UNK
     Route: 042
     Dates: start: 2012
  2. CONCOR [Concomitant]
  3. FURSEMID                           /00032601/ [Concomitant]
  4. MEDROL                             /00049601/ [Concomitant]
  5. SERETIDE                           /01420901/ [Concomitant]
  6. ATROVENT [Concomitant]

REACTIONS (3)
  - Death [Fatal]
  - Pulmonary oedema [Unknown]
  - Wrong technique in drug usage process [Unknown]
